FAERS Safety Report 11468503 (Version 2)
Quarter: 2015Q3

REPORT INFORMATION
  Report Type: Spontaneous
  Country: US (occurrence: US)
  Receive Date: 20150903
  Receipt Date: 20150903
  Transmission Date: 20151125
  Serious: No
  Sender: FDA-Public Use
  Company Number: US-ELI_LILLY_AND_COMPANY-US201109004141

PATIENT
  Age: 30 Year
  Sex: Female

DRUGS (2)
  1. CYMBALTA [Suspect]
     Active Substance: DULOXETINE HYDROCHLORIDE
     Dosage: 30 MG, QOD
  2. CYMBALTA [Suspect]
     Active Substance: DULOXETINE HYDROCHLORIDE
     Indication: DEPRESSION
     Dosage: 60 MG, UNK
     Dates: start: 201104

REACTIONS (6)
  - Diarrhoea [Recovered/Resolved]
  - Vision blurred [Not Recovered/Not Resolved]
  - Drug dose omission [Recovered/Resolved]
  - Paraesthesia [Recovered/Resolved]
  - Dizziness [Not Recovered/Not Resolved]
  - Drug withdrawal syndrome [Recovering/Resolving]
